FAERS Safety Report 6874460-0 (Version None)
Quarter: 2010Q3

REPORT INFORMATION
  Report Type: 
  Country: None (occurrence: None)
  Receive Date: 20100722
  Receipt Date: 20100722
  Transmission Date: 20110219
  Serious: No
  Sender: FDA-Public Use
  Company Number: None

PATIENT

DRUGS (4)
  1. CHILDREN'S IBUPROFEN [Suspect]
     Dosage: SUSPENSION
     Route: 048
  2. ACETAMINOPHEN [Suspect]
     Dosage: SUSPENSION
     Route: 048
  3. DOCUSATE SODIUM DOSUCATE SODIUM [Suspect]
     Route: 048
  4. DOCUSATE SODIUM AND SENNOSIDES DOCUSATE SODIUM AND SENNOSIDES [Suspect]
     Route: 048

REACTIONS (2)
  - MEDICATION ERROR [None]
  - PRODUCT OUTER PACKAGING ISSUE [None]
